FAERS Safety Report 16785203 (Version 2)
Quarter: 2019Q3

REPORT INFORMATION
  Report Type: Report from Study
  Country: US (occurrence: US)
  Receive Date: 20190909
  Receipt Date: 20190911
  Transmission Date: 20191005
  Serious: Yes (Hospitalization, Other)
  Sender: FDA-Public Use
  Company Number: US-GILEAD-2019-0427232

PATIENT
  Age: 86 Year
  Sex: Female

DRUGS (3)
  1. AMBRISENTAN [Suspect]
     Active Substance: AMBRISENTAN
     Indication: PRODUCT USED FOR UNKNOWN INDICATION
     Dosage: 5 MG
     Route: 048
     Dates: start: 20110907
  2. LASIX [Concomitant]
     Active Substance: FUROSEMIDE
  3. DILTIAZEM. [Concomitant]
     Active Substance: DILTIAZEM

REACTIONS (3)
  - Pneumonia [Unknown]
  - Cerebrovascular accident [Unknown]
  - Aspiration [Unknown]
